FAERS Safety Report 7557484-X (Version None)
Quarter: 2011Q2

REPORT INFORMATION
  Report Type: 
  Country: None (occurrence: None)
  Receive Date: 20110610
  Receipt Date: 20110601
  Transmission Date: 20111010
  Serious: Yes (Disabling, Other)
  Sender: FDA-Public Use
  Company Number: ACO_23521_2011

PATIENT
  Age: 74 Year
  Sex: Female
  Weight: 77.1 kg

DRUGS (16)
  1. FISH OIL (FISH OIL) [Concomitant]
  2. MAGNESIUM (MAGNESIUM) [Concomitant]
  3. DICYCLOMINE [Concomitant]
  4. NAMENDA [Concomitant]
  5. HYDROCORTONE [Concomitant]
  6. CALCIUM (CALCIUM) [Concomitant]
  7. LYRICA [Concomitant]
  8. ASPIRIN [Concomitant]
  9. COPAXONE [Concomitant]
  10. SAVELLA [Suspect]
     Indication: PAIN
     Dates: end: 20110323
  11. THYROID TAB [Concomitant]
  12. AMOXICILLIN [Concomitant]
  13. AMPYRA [Suspect]
     Indication: GAIT DISTURBANCE
     Dosage: 10 MG, BID, ORAL
     Route: 048
     Dates: start: 20110401
  14. AMPYRA [Suspect]
     Indication: GAIT DISTURBANCE
     Dosage: 10 MG, BID, ORAL
     Route: 048
     Dates: start: 20110401, end: 20110401
  15. ARICEPT [Concomitant]
  16. OMEPRAZOLE [Concomitant]

REACTIONS (2)
  - DYSKINESIA [None]
  - TREMOR [None]
